FAERS Safety Report 5598293-0 (Version None)
Quarter: 2008Q1

REPORT INFORMATION
  Report Type: 
  Country: None (occurrence: None)
  Receive Date: 20080122
  Receipt Date: 20080115
  Transmission Date: 20080703
  Serious: Yes (Death)
  Sender: FDA-Public Use
  Company Number: JP-AVENTIS-200810121JP

PATIENT
  Age: 71 Year
  Sex: Male

DRUGS (1)
  1. RILUTEK [Suspect]
     Dates: start: 20071121

REACTIONS (1)
  - PNEUMONIA [None]
